FAERS Safety Report 9796846 (Version 1)
Quarter: 2014Q1

REPORT INFORMATION
  Report Type: Spontaneous
  Country: US (occurrence: US)
  Receive Date: 20140103
  Receipt Date: 20140103
  Transmission Date: 20141002
  Serious: No
  Sender: FDA-Public Use
  Company Number: US-GILEAD-2014-0091158

PATIENT
  Age: 63 Year
  Sex: Female

DRUGS (2)
  1. LETAIRIS [Suspect]
     Indication: PRODUCT USED FOR UNKNOWN INDICATION
     Dosage: 10 MG, QD
     Route: 048
     Dates: start: 20111214
  2. REVATIO [Concomitant]

REACTIONS (5)
  - Syncope [Unknown]
  - Infection [Unknown]
  - Limb injury [Unknown]
  - Contusion [Unknown]
  - Local swelling [Unknown]
